FAERS Safety Report 10779576 (Version 1)
Quarter: 2015Q1

REPORT INFORMATION
  Report Type: Spontaneous
  Country: US (occurrence: None)
  Receive Date: 20150206
  Receipt Date: 20150206
  Transmission Date: 20150721
  Serious: Yes (Death)
  Sender: FDA-Public Use
  Company Number: None

PATIENT
  Age: 94 Year
  Sex: Female
  Weight: 68 kg

DRUGS (13)
  1. AMIODARONE [Concomitant]
     Active Substance: AMIODARONE
  2. HYDROCODONE [Concomitant]
     Active Substance: HYDROCODONE
  3. LORAZEPAM. [Concomitant]
     Active Substance: LORAZEPAM
  4. MONTELUKAST [Concomitant]
     Active Substance: MONTELUKAST SODIUM
  5. AMLODIPINE [Concomitant]
     Active Substance: AMLODIPINE BESYLATE
  6. LISINOPRIL. [Concomitant]
     Active Substance: LISINOPRIL
  7. NEBIVOLOL [Concomitant]
     Active Substance: NEBIVOLOL
  8. BUDESONIDE. [Concomitant]
     Active Substance: BUDESONIDE
  9. DOCUSATE [Concomitant]
     Active Substance: DOCUSATE
  10. DABIGATRAN 75 MG BOEHRINGER INGELHEIM PHARMACEUTICALS [Suspect]
     Active Substance: DABIGATRAN
     Indication: ATRIAL FIBRILLATION
     Route: 048
  11. FUROSEMIDE. [Concomitant]
     Active Substance: FUROSEMIDE
  12. TIOTROPIUOM [Concomitant]
  13. DABIGATRAN [Concomitant]
     Active Substance: DABIGATRAN

REACTIONS (17)
  - Asthenia [None]
  - Respiratory arrest [None]
  - Haematemesis [None]
  - Dyspnoea [None]
  - Urinary tract infection [None]
  - Drug level increased [None]
  - Renal failure [None]
  - Confusional state [None]
  - Hypotension [None]
  - Bacterial infection [None]
  - Extra dose administered [None]
  - Nausea [None]
  - Haemoptysis [None]
  - Wrong technique in drug usage process [None]
  - Cardiac arrest [None]
  - International normalised ratio increased [None]
  - Thrombin time [None]

NARRATIVE: CASE EVENT DATE: 20150203
